FAERS Safety Report 18234071 (Version 1)
Quarter: 2020Q3

REPORT INFORMATION
  Report Type: Report from Study
  Country: None (occurrence: CA)
  Receive Date: 20200904
  Receipt Date: 20200904
  Transmission Date: 20201103
  Serious: No
  Sender: FDA-Public Use
  Company Number: CA-HLS-202001298

PATIENT
  Age: 51 Year
  Sex: Male

DRUGS (1)
  1. CLOZARIL [Suspect]
     Active Substance: CLOZAPINE
     Indication: PRODUCT USED FOR UNKNOWN INDICATION
     Route: 048

REACTIONS (8)
  - Troponin increased [Unknown]
  - Right atrial enlargement [Unknown]
  - Cardiomyopathy [Unknown]
  - Dizziness [Unknown]
  - Tricuspid valve incompetence [Unknown]
  - Aortic valve sclerosis [Unknown]
  - C-reactive protein increased [Unknown]
  - Pericardial effusion [Unknown]
